FAERS Safety Report 5922570-4 (Version None)
Quarter: 2008Q4

REPORT INFORMATION
  Report Type: 
  Country: None (occurrence: None)
  Receive Date: 20081017
  Receipt Date: 20081006
  Transmission Date: 20090506
  Serious: Yes (Hospitalization)
  Sender: FDA-Public Use
  Company Number: US-ROCHE-590140

PATIENT
  Sex: Female
  Weight: 81.6 kg

DRUGS (5)
  1. CAPECITABINE [Suspect]
     Indication: BREAST CANCER
     Dosage: 9 TABLETS DAILY 2500 MG IN THE MORNING AND 2000 MG IN THE EVENING
     Route: 048
     Dates: start: 20080811, end: 20080922
  2. INSULIN [Concomitant]
  3. LISINOPRIL [Concomitant]
  4. PREDNISONE TAB [Concomitant]
  5. ULTRAM [Concomitant]

REACTIONS (3)
  - COLLAPSE OF LUNG [None]
  - OEDEMA [None]
  - SKIN EXFOLIATION [None]
